FAERS Safety Report 12377780 (Version 1)
Quarter: 2016Q2

REPORT INFORMATION
  Report Type: Spontaneous
  Country: US (occurrence: US)
  Receive Date: 20160517
  Receipt Date: 20160517
  Transmission Date: 20160815
  Serious: No
  Sender: FDA-Public Use
  Company Number: US-MALLINCKRODT-T201600473

PATIENT
  Sex: Male

DRUGS (1)
  1. H.P. ACTHAR [Suspect]
     Active Substance: CORTICOTROPIN
     Indication: NEUROSARCOIDOSIS
     Dosage: UNK DOSE/FREQUENCY
     Route: 065

REACTIONS (2)
  - Blood pressure decreased [Unknown]
  - Blood glucose increased [Unknown]
